FAERS Safety Report 7936774-2 (Version None)
Quarter: 2011Q4

REPORT INFORMATION
  Report Type: 
  Country: None (occurrence: None)
  Receive Date: 20111110
  Receipt Date: 20111103
  Transmission Date: 20120403
  Serious: Yes (Other)
  Sender: FDA-Public Use
  Company Number: 2011029928

PATIENT
  Sex: Female
  Weight: 68.0396 kg

DRUGS (6)
  1. PRIVIGEN [Suspect]
  2. PRIVIGEN [Suspect]
     Indication: DERMATOMYOSITIS
     Dosage: INTRAVENOUS (30 G, 30 ML/HR-50 ML/HR IN 3 HOURS
     Route: 042
     Dates: end: 20110928
  3. PRIVIGEN [Suspect]
     Indication: DERMATOMYOSITIS
     Dosage: INTRAVENOUS (30 G, 30 ML/HR-50 ML/HR IN 3 HOURS
     Route: 042
     Dates: start: 20110817
  4. PRIVIGEN [Suspect]
     Indication: DERMATOMYOSITIS
     Dosage: INTRAVENOUS (30 G, 30 ML/HR-50 ML/HR IN 3 HOURS
     Route: 042
     Dates: start: 20110817
  5. LOTREL [Concomitant]
  6. ALLEGRA [Concomitant]

REACTIONS (3)
  - WEIGHT DECREASED [None]
  - NEUTROPENIA [None]
  - WHITE BLOOD CELL COUNT DECREASED [None]
